FAERS Safety Report 26019674 (Version 1)
Quarter: 2025Q4

REPORT INFORMATION
  Report Type: Spontaneous
  Country: US (occurrence: US)
  Receive Date: 20251110
  Receipt Date: 20251110
  Transmission Date: 20260117
  Serious: Yes (Other)
  Sender: PFIZER
  Company Number: US-PFIZER INC-202500218548

PATIENT

DRUGS (3)
  1. ELREXFIO [Suspect]
     Active Substance: ELRANATAMAB-BCMM
     Dosage: UNK
  2. VELCADE [Concomitant]
     Active Substance: BORTEZOMIB
     Dosage: UNK
  3. REVLIMID [Concomitant]
     Active Substance: LENALIDOMIDE
     Dosage: UNK

REACTIONS (2)
  - Neuropathy peripheral [Recovered/Resolved]
  - Neuralgia [Recovered/Resolved]
